FAERS Safety Report 23648153 (Version 1)
Quarter: 2024Q1

REPORT INFORMATION
  Report Type: Spontaneous
  Country: US (occurrence: US)
  Receive Date: 20240319
  Receipt Date: 20240319
  Transmission Date: 20240410
  Serious: No
  Sender: FDA-Public Use
  Company Number: US-BIOGEN-2024BI01255376

PATIENT
  Sex: Male

DRUGS (2)
  1. VUMERITY [Suspect]
     Active Substance: DIROXIMEL FUMARATE
     Indication: Multiple sclerosis
     Route: 050
     Dates: start: 20220624, end: 202208
  2. VUMERITY [Suspect]
     Active Substance: DIROXIMEL FUMARATE
     Dosage: PAST REGIMEN (STOPPED TEMPORARILY)
     Route: 050
     Dates: start: 20200729, end: 20220101

REACTIONS (2)
  - Nephrolithiasis [Unknown]
  - Urinary tract infection [Unknown]
